FAERS Safety Report 19381765 (Version 7)
Quarter: 2024Q4

REPORT INFORMATION
  Report Type: Report from Study
  Country: JP (occurrence: JP)
  Receive Date: 20210607
  Receipt Date: 20241209
  Transmission Date: 20250115
  Serious: Yes (Hospitalization, Other)
  Sender: ROCHE
  Company Number: JP-CHUGAI-2021002077AA

PATIENT
  Age: 65 Year
  Sex: Female
  Weight: 49.5 kg

DRUGS (10)
  1. GAZYVA [Suspect]
     Active Substance: OBINUTUZUMAB
     Indication: Follicular lymphoma
     Dosage: UNK
     Route: 042
     Dates: start: 20201111, end: 20201111
  2. GAZYVA [Suspect]
     Active Substance: OBINUTUZUMAB
     Dosage: UNK
     Route: 041
     Dates: start: 20201118, end: 20201118
  3. GAZYVA [Suspect]
     Active Substance: OBINUTUZUMAB
     Dosage: UNK
     Route: 041
     Dates: start: 20201124, end: 20201124
  4. GAZYVA [Suspect]
     Active Substance: OBINUTUZUMAB
     Dosage: UNK
     Route: 041
     Dates: start: 20201208, end: 20201208
  5. GAZYVA [Suspect]
     Active Substance: OBINUTUZUMAB
     Dosage: UNK
     Route: 041
     Dates: start: 20210105, end: 20210105
  6. GAZYVA [Suspect]
     Active Substance: OBINUTUZUMAB
     Dosage: UNK
     Route: 041
     Dates: start: 20210209, end: 20210209
  7. GAZYVA [Suspect]
     Active Substance: OBINUTUZUMAB
     Route: 041
     Dates: start: 20210309, end: 20210309
  8. GAZYVA [Suspect]
     Active Substance: OBINUTUZUMAB
     Route: 041
     Dates: start: 20210406, end: 20210406
  9. BENDAMUSTINE HYDROCHLORIDE [Suspect]
     Active Substance: BENDAMUSTINE HYDROCHLORIDE
     Indication: Follicular lymphoma
     Dosage: ON 07/APR/2021, LAST DOSE ADMINISTERED
     Route: 041
     Dates: start: 20201111, end: 20210407
  10. LEVOTHYROXINE SODIUM [Concomitant]
     Active Substance: LEVOTHYROXINE SODIUM
     Dosage: UNK
     Route: 065

REACTIONS (6)
  - Myelosuppression [Unknown]
  - Cytomegalovirus gastroenteritis [Recovered/Resolved]
  - Infusion related reaction [Unknown]
  - Neutrophil count decreased [Unknown]
  - Cytomegalovirus viraemia [Unknown]
  - Food protein-induced enterocolitis syndrome [Unknown]

NARRATIVE: CASE EVENT DATE: 20210409
